FAERS Safety Report 8894913 (Version 1)
Quarter: 2012Q4

REPORT INFORMATION
  Report Type: 
  Country: US (occurrence: US)
  Receive Date: 20121108
  Receipt Date: 20121108
  Transmission Date: 20130627
  Serious: No
  Sender: FDA-Public Use
  Company Number: US-PFIZER INC-2012275020

PATIENT
  Sex: Male

DRUGS (1)
  1. VIAGRA [Suspect]
     Dosage: 6 tablets at once
     Route: 048

REACTIONS (4)
  - Incorrect dose administered [Unknown]
  - Nervousness [Unknown]
  - Penis disorder [Unknown]
  - Penile pain [Unknown]
